FAERS Safety Report 22764823 (Version 3)
Quarter: 2024Q2

REPORT INFORMATION
  Report Type: Spontaneous
  Country: CA (occurrence: None)
  Receive Date: 20230731
  Receipt Date: 20240426
  Transmission Date: 20240716
  Serious: Yes (Death, Hospitalization)
  Sender: FDA-Public Use
  Company Number: CA-ROCHE-3395640

PATIENT
  Age: 79 Year
  Sex: Male
  Weight: 87 kg

DRUGS (2)
  1. RITUXIMAB [Suspect]
     Active Substance: RITUXIMAB
     Indication: Pulmonary fibrosis
     Route: 065
  2. LUSPATERCEPT [Suspect]
     Active Substance: LUSPATERCEPT
     Indication: Myelodysplastic syndrome
     Route: 058

REACTIONS (12)
  - Acute kidney injury [Fatal]
  - Endocarditis staphylococcal [Fatal]
  - Lung infiltration [Fatal]
  - Malaise [Fatal]
  - Pleural effusion [Fatal]
  - Pneumonia staphylococcal [Fatal]
  - Staphylococcal sepsis [Fatal]
  - Treatment noncompliance [Fatal]
  - White blood cell count increased [Fatal]
  - Red blood cell count decreased [Fatal]
  - Haemoglobin decreased [Fatal]
  - Sepsis [Fatal]
